FAERS Safety Report 5040592-5 (Version None)
Quarter: 2006Q2

REPORT INFORMATION
  Report Type: 
  Country: None (occurrence: None)
  Receive Date: 20060630
  Receipt Date: 20060619
  Transmission Date: 20061013
  Serious: No
  Sender: FDA-Public Use
  Company Number: DK-GILEAD-2006-0009813

PATIENT
  Sex: Male

DRUGS (5)
  1. TRUVADA [Suspect]
     Dates: start: 20051111, end: 20060313
  2. STOCRIN [Concomitant]
     Dates: start: 20051111, end: 20060201
  3. VIRAMUNE [Concomitant]
     Dates: start: 20060201, end: 20060313
  4. COMBIVIR [Concomitant]
     Dates: start: 20060313
  5. KALETRA [Concomitant]
     Dates: start: 20060313

REACTIONS (2)
  - GYNAECOMASTIA [None]
  - SYNCOPE [None]
